FAERS Safety Report 6385129-3 (Version None)
Quarter: 2009Q4

REPORT INFORMATION
  Report Type: 
  Country: None (occurrence: None)
  Receive Date: 20091002
  Receipt Date: 20090928
  Transmission Date: 20100525
  Serious: Yes (Life-Threatening, Hospitalization)
  Sender: FDA-Public Use
  Company Number: BE-BRISTOL-MYERS SQUIBB COMPANY-14707988

PATIENT
  Age: 55 Year
  Sex: Male
  Weight: 52 kg

DRUGS (8)
  1. CETUXIMAB [Suspect]
     Indication: HEAD AND NECK CANCER
     Dosage: MOST RECENT DOSE-08JUL09. DISCONTINUED ON 30-JUL-2009
     Route: 042
     Dates: start: 20090428, end: 20090708
  2. CISPLATIN [Suspect]
     Indication: HEAD AND NECK CANCER
     Dosage: MOST RECENT DOSE-01JUL09 DRUG DISCONTINUED ON 30-JUL-2009
     Route: 042
     Dates: start: 20090428, end: 20090701
  3. DOCETAXEL [Suspect]
     Indication: HEAD AND NECK CANCER
     Dosage: MOST RECENT DOSE-01JUL09.DRUG DISCONTINUED ON : 30-JUL-2009
     Route: 042
     Dates: start: 20090428, end: 20090701
  4. FLUOROURACIL [Suspect]
     Indication: HEAD AND NECK CANCER
     Dosage: MOST RECENT DOSE-05JUL09.DRUG DISCONTINUED ON : 30-JUL-2009
     Route: 042
     Dates: start: 20090428, end: 20090705
  5. MEDROL [Suspect]
     Indication: PROPHYLAXIS OF NAUSEA AND VOMITING
     Dosage: 32MG 2/1D:28APR09,32MG 1/1D:05-18MAY09,32MG2/1D:19-20MAY09, 32MG1/1D:21MAY-09JUN09,32MG2/1D 10JUN09,
     Route: 048
     Dates: start: 20090427, end: 20090708
  6. OMEPRAZOLE [Concomitant]
     Indication: GASTRIC ULCER
     Route: 048
     Dates: start: 20090414
  7. NULYTELY [Concomitant]
     Indication: CONSTIPATION PROPHYLAXIS
     Dosage: 1 DF= 1 BAG
     Dates: start: 20090427
  8. PERIO AID [Concomitant]
     Indication: DENTAL DISORDER PROPHYLAXIS
     Route: 048
     Dates: start: 20090421

REACTIONS (8)
  - BRONCHOPULMONARY ASPERGILLOSIS [None]
  - DEEP VEIN THROMBOSIS [None]
  - ENTERITIS [None]
  - HYPERTENSION [None]
  - INTERSTITIAL LUNG DISEASE [None]
  - LEFT VENTRICULAR DYSFUNCTION [None]
  - NEUTROPENIA [None]
  - URINARY TRACT INFECTION [None]
